FAERS Safety Report 5415377-8 (Version None)
Quarter: 2007Q3

REPORT INFORMATION
  Report Type: 
  Country: None (occurrence: None)
  Receive Date: 20070814
  Receipt Date: 20070814
  Transmission Date: 20080115
  Serious: Yes (Life-Threatening)
  Sender: FDA-Public Use
  Company Number: None

PATIENT
  Age: 76 Year
  Sex: Female

DRUGS (8)
  1. BENZONATATE [Suspect]
     Indication: COUGH
     Dosage: ORAL;100.0 MILLIGRAM
  2. HYDRALAZINE HCL [Concomitant]
  3. ISOSORBIDE DINITRATE [Concomitant]
  4. METOPROLOL SUCCINATE [Concomitant]
  5. ASPIRIN [Concomitant]
  6. SIMVASTATIN [Concomitant]
  7. CLOPIDOGREL [Concomitant]
  8. LISINOPRIL [Concomitant]

REACTIONS (5)
  - DYSPNOEA [None]
  - LARYNGOSPASM [None]
  - OXYGEN SATURATION DECREASED [None]
  - STRIDOR [None]
  - UNRESPONSIVE TO STIMULI [None]
